FAERS Safety Report 8758305 (Version 1)
Quarter: 2012Q4

REPORT INFORMATION
  Report Type: 
  Country: RU (occurrence: RU)
  Receive Date: 20120829
  Receipt Date: 20120829
  Transmission Date: 20130627
  Serious: Yes (Death)
  Sender: FDA-Public Use
  Company Number: RU-ELI_LILLY_AND_COMPANY-RU200607003477

PATIENT
  Age: 73 Year
  Sex: Male
  Weight: 67 kg

DRUGS (5)
  1. OLANZAPINE [Suspect]
     Indication: SCHIZOPHRENIA, PARANOID TYPE
     Dosage: 10 mg, 2/D
     Route: 048
     Dates: start: 20060627
  2. HALOPERIDOL [Concomitant]
     Indication: PSYCHOTIC DISORDER
     Route: 030
     Dates: start: 20060625
  3. CHLORPROMAZINE [Concomitant]
     Indication: PSYCHOTIC DISORDER
     Dosage: 50 mg, 3/D
     Route: 030
     Dates: start: 20060626, end: 20060627
  4. CLOZAPINE [Concomitant]
     Indication: PSYCHOTIC DISORDER
     Dosage: 50 mg, daily (1/D)
     Dates: start: 20060626, end: 20060628
  5. TRIFLUOPERAZINE [Concomitant]
     Indication: PSYCHOTIC DISORDER
     Dosage: 2 mg, 3/D
     Route: 030
     Dates: start: 20060626

REACTIONS (2)
  - Asphyxia [Fatal]
  - Completed suicide [Fatal]
